FAERS Safety Report 13329791 (Version 2)
Quarter: 2017Q1

REPORT INFORMATION
  Report Type: Spontaneous
  Country: JP (occurrence: JP)
  Receive Date: 20170313
  Receipt Date: 20170317
  Transmission Date: 20170428
  Serious: Yes (Other)
  Sender: FDA-Public Use
  Company Number: JP-PFIZER INC-2017108870

PATIENT
  Age: 75 Year
  Sex: Male

DRUGS (2)
  1. FLUCONAZOLE. [Suspect]
     Active Substance: FLUCONAZOLE
     Indication: MENINGITIS CRYPTOCOCCAL
     Dosage: UNK
  2. AMPHOTERICIN-B LIPOSOMAL [Concomitant]
     Indication: MENINGITIS CRYPTOCOCCAL
     Dosage: 4.0 MG/KG, 175 MG/DAY

REACTIONS (1)
  - Erythema multiforme [Unknown]
